FAERS Safety Report 7368469-0 (Version None)
Quarter: 2011Q1

REPORT INFORMATION
  Report Type: 
  Country: None (occurrence: None)
  Receive Date: 20110323
  Receipt Date: 20110309
  Transmission Date: 20110831
  Serious: Yes (Hospitalization)
  Sender: FDA-Public Use
  Company Number: US-JNJFOC-20110306946

PATIENT
  Sex: Male
  Weight: 88.6 kg

DRUGS (39)
  1. CLOPIDOGREL [Suspect]
     Indication: ACUTE CORONARY SYNDROME
  2. AVELOX [Concomitant]
  3. TOPROL-XL [Concomitant]
     Route: 048
  4. HEPARIN [Concomitant]
     Route: 042
  5. NITROGLYCERIN [Concomitant]
     Indication: CHEST PAIN
     Route: 060
  6. CEFTRIAXONE [Concomitant]
     Route: 030
  7. LIDOCAINE [Concomitant]
  8. METFORMIN [Concomitant]
     Route: 048
  9. DETROL LA [Concomitant]
     Route: 048
  10. RIVAROXABAN [Suspect]
     Indication: ACUTE CORONARY SYNDROME
     Route: 048
  11. ROPINIROLE [Concomitant]
  12. BENICAR [Concomitant]
  13. VERSED [Concomitant]
     Route: 042
  14. CLOPIDOGREL [Suspect]
  15. DEXAMETHASONE [Concomitant]
     Route: 030
  16. FUROSEMIDE [Concomitant]
  17. NORVASC [Concomitant]
  18. LIPITOR [Concomitant]
     Route: 048
  19. ATIVAN [Concomitant]
     Route: 048
  20. BICARBONATE [Concomitant]
  21. CRESTOR [Concomitant]
     Route: 048
  22. ASPIRIN [Suspect]
     Route: 048
  23. PLACEBO [Suspect]
     Indication: ACUTE CORONARY SYNDROME
     Route: 048
  24. REOPRO [Concomitant]
     Route: 042
  25. ASPIRIN [Suspect]
     Indication: ACUTE CORONARY SYNDROME
     Route: 048
  26. LISINOPRIL [Concomitant]
  27. PAROXETINE HCL [Concomitant]
  28. COREG [Concomitant]
     Route: 048
  29. LOVENOX [Concomitant]
     Route: 058
  30. PEPCID [Concomitant]
     Route: 048
  31. ZOCOR [Concomitant]
     Route: 048
  32. NIACIN [Concomitant]
     Route: 048
  33. SPIRONOLACTONE [Concomitant]
  34. FLOMAX [Concomitant]
  35. SURFAK [Concomitant]
     Route: 048
  36. INFLUENZA VACCINE [Concomitant]
  37. FENTANYL [Concomitant]
     Route: 042
  38. ACETAMINOPHEN [Concomitant]
     Route: 048
  39. NICOTINE PATCH [Concomitant]
     Route: 061

REACTIONS (1)
  - GASTROINTESTINAL HAEMORRHAGE [None]
